FAERS Safety Report 25889026 (Version 1)
Quarter: 2025Q4

REPORT INFORMATION
  Report Type: Spontaneous
  Country: US (occurrence: US)
  Receive Date: 20251007
  Receipt Date: 20251007
  Transmission Date: 20260117
  Serious: Yes (Other)
  Sender: CIPLA
  Company Number: US-CIPLA LTD.-2025US12273

PATIENT

DRUGS (7)
  1. DECITABINE [Suspect]
     Active Substance: DECITABINE
     Indication: Acute myeloid leukaemia recurrent
     Dosage: UNK
     Route: 065
  2. VORINOSTAT [Suspect]
     Active Substance: VORINOSTAT
     Indication: Acute myeloid leukaemia recurrent
     Dosage: UNK
     Route: 065
  3. FLUDARABINE [Suspect]
     Active Substance: FLUDARABINE PHOSPHATE
     Indication: Acute myeloid leukaemia recurrent
     Dosage: UNK
     Route: 065
  4. CYTARABINE [Suspect]
     Active Substance: CYTARABINE
     Indication: Acute myeloid leukaemia recurrent
     Dosage: UNK
     Route: 065
  5. FILGRASTIM [Suspect]
     Active Substance: FILGRASTIM
     Indication: Acute myeloid leukaemia recurrent
     Dosage: UNK
     Route: 065
  6. HYDROCORTISONE [Concomitant]
     Active Substance: HYDROCORTISONE
     Indication: Acute myeloid leukaemia recurrent
     Dosage: UNK, TWICE WEEKLY
     Route: 037
  7. METHOTREXATE [Concomitant]
     Active Substance: METHOTREXATE
     Indication: Acute myeloid leukaemia recurrent
     Dosage: UNK, TWICE WEEKLY
     Route: 037

REACTIONS (2)
  - Septic shock [Unknown]
  - Myelosuppression [Unknown]
